FAERS Safety Report 4864255-1 (Version None)
Quarter: 2005Q4

REPORT INFORMATION
  Report Type: 
  Country: None (occurrence: None)
  Receive Date: 20051222
  Receipt Date: 20050615
  Transmission Date: 20060501
  Serious: Yes (Disabling)
  Sender: FDA-Public Use
  Company Number: 2005AP03648

PATIENT
  Age: 615 Month
  Sex: Female

DRUGS (6)
  1. ARIMIDEX [Suspect]
     Indication: BREAST CANCER
     Route: 048
     Dates: start: 20031008, end: 20041005
  2. NOLVADEX [Suspect]
     Indication: BREAST CANCER
     Route: 048
     Dates: start: 20010101, end: 20031001
  3. RADIOTHERAPY [Concomitant]
     Dosage: 50 GY TO LEFT BREAST
  4. CYCLOPHOSPHAMIDE [Concomitant]
     Dosage: 6 COURSES
  5. METHOTREXATE [Concomitant]
  6. FLUOROURACIL [Concomitant]

REACTIONS (3)
  - ATROPHY [None]
  - CARPAL TUNNEL SYNDROME [None]
  - MENOPAUSE [None]
